FAERS Safety Report 10612528 (Version 2)
Quarter: 2015Q2

REPORT INFORMATION
  Report Type: Spontaneous
  Country: US (occurrence: US)
  Receive Date: 20141127
  Receipt Date: 20150415
  Transmission Date: 20150821
  Serious: No
  Sender: FDA-Public Use
  Company Number: US-BIOGENIDEC-2014BI122774

PATIENT
  Sex: Female

DRUGS (1)
  1. TECFIDERA [Suspect]
     Active Substance: DIMETHYL FUMARATE
     Indication: MULTIPLE SCLEROSIS
     Dates: start: 2014

REACTIONS (4)
  - Cognitive disorder [Unknown]
  - Hypoaesthesia [Unknown]
  - Headache [Unknown]
  - Memory impairment [Not Recovered/Not Resolved]
